FAERS Safety Report 12707666 (Version 2)
Quarter: 2016Q3

REPORT INFORMATION
  Report Type: Report from Study
  Country: US (occurrence: US)
  Receive Date: 20160901
  Receipt Date: 20160928
  Transmission Date: 20161109
  Serious: Yes (Hospitalization)
  Sender: FDA-Public Use
  Company Number: US-SEATTLE GENETICS-2016SGN01340

PATIENT

DRUGS (8)
  1. CYCLOPHOSPHAMIDE. [Suspect]
     Active Substance: CYCLOPHOSPHAMIDE
     Indication: ANAPLASTIC LARGE CELL LYMPHOMA T- AND NULL-CELL TYPES
     Dosage: 750 MG/M2, Q21D
     Route: 042
     Dates: start: 20160816, end: 20160816
  2. PREDNISONE. [Suspect]
     Active Substance: PREDNISONE
     Indication: ANAPLASTIC LARGE CELL LYMPHOMA T- AND NULL-CELL TYPES
     Dosage: 100 MG, QCYCLE
     Route: 048
     Dates: start: 20160816, end: 20160816
  3. ONDANSETRON [Concomitant]
     Active Substance: ONDANSETRON
     Indication: NAUSEA
     Dosage: 8 MG, UNK
     Dates: start: 20160816
  4. DOXORUBICIN [Suspect]
     Active Substance: DOXORUBICIN
     Indication: ANAPLASTIC LARGE CELL LYMPHOMA T- AND NULL-CELL TYPES
     Dosage: 50 MG/M2, Q21D
     Route: 042
     Dates: start: 20160816, end: 20160816
  5. XALATAN [Concomitant]
     Active Substance: LATANOPROST
     Indication: GLAUCOMA
     Dosage: UNK
     Route: 047
     Dates: start: 2015
  6. VINCRISTINE [Suspect]
     Active Substance: VINCRISTINE
     Indication: ANAPLASTIC LARGE CELL LYMPHOMA T- AND NULL-CELL TYPES
     Dosage: 1.4 MG/KG, Q21D
     Route: 042
     Dates: start: 20160816, end: 20160816
  7. NIACIN. [Concomitant]
     Active Substance: NIACIN
     Indication: BLOOD CHOLESTEROL
     Dosage: 1000 MG, UNK
     Dates: start: 2015
  8. PLACEBO FOR BRENTUXIMAB VEDOTIN [Suspect]
     Active Substance: BRENTUXIMAB VEDOTIN
     Indication: ANAPLASTIC LARGE CELL LYMPHOMA T- AND NULL-CELL TYPES
     Dosage: 1.8 MG/KG, Q21D
     Route: 042
     Dates: start: 20160816, end: 20160816

REACTIONS (2)
  - Dehydration [Recovered/Resolved]
  - Pyrexia [Recovered/Resolved]

NARRATIVE: CASE EVENT DATE: 20160822
